FAERS Safety Report 6886053-X (Version None)
Quarter: 2010Q3

REPORT INFORMATION
  Report Type: 
  Country: None (occurrence: None)
  Receive Date: 20100729
  Receipt Date: 20081222
  Transmission Date: 20110219
  Serious: No
  Sender: FDA-Public Use
  Company Number: US-PFIZER INC-2008150590

PATIENT
  Sex: Male
  Weight: 107.3 kg

DRUGS (5)
  1. QUINAPRIL HCL [Suspect]
     Indication: HYPERTENSION
     Dosage: 40 MG, 1X/DAY
  2. AMLODIPINE BESYLATE [Suspect]
     Indication: HYPERTENSION
     Dosage: 10 MG, 1X/DAY
  3. MINOXIDIL [Suspect]
     Indication: HYPERTENSION
  4. SPIRONOLACTONE [Suspect]
     Indication: HYPERTENSION
  5. FUROSEMIDE [Suspect]
     Indication: HYPERTENSION

REACTIONS (4)
  - BLOOD PRESSURE INADEQUATELY CONTROLLED [None]
  - ERUCTATION [None]
  - FLATULENCE [None]
  - HEART RATE IRREGULAR [None]
